FAERS Safety Report 26074845 (Version 1)
Quarter: 2025Q4

REPORT INFORMATION
  Report Type: Report from Study
  Country: BR (occurrence: BR)
  Receive Date: 20251121
  Receipt Date: 20251121
  Transmission Date: 20260118
  Serious: Yes (Other)
  Sender: KYOWA
  Company Number: BR-KYOWAKIRIN-2025KK022219

PATIENT

DRUGS (2)
  1. BUROSUMAB [Suspect]
     Active Substance: BUROSUMAB
     Indication: Hereditary hypophosphataemic rickets
     Dosage: 30 MG, 1X/2 WEEKS
     Route: 058
     Dates: start: 20230904
  2. BUROSUMAB [Suspect]
     Active Substance: BUROSUMAB
     Dosage: 30 MG, 1X/2 WEEKS
     Route: 058
     Dates: start: 20251101

REACTIONS (1)
  - Nephrolithiasis [Unknown]

NARRATIVE: CASE EVENT DATE: 20250701
